FAERS Safety Report 5491568-5 (Version None)
Quarter: 2007Q4

REPORT INFORMATION
  Report Type: 
  Country: None (occurrence: None)
  Receive Date: 20071018
  Receipt Date: 20071018
  Transmission Date: 20080405
  Serious: Yes (Hospitalization)
  Sender: FDA-Public Use
  Company Number: None

PATIENT
  Age: 77 Year
  Sex: Female
  Weight: 75 kg

DRUGS (18)
  1. HEPARIN [Suspect]
     Indication: ATRIAL FIBRILLATION
     Dosage: INFUSION
     Dates: start: 20070905, end: 20070908
  2. ATOVAQUONE [Concomitant]
  3. CLONIDINE [Concomitant]
  4. DOCUSATE [Concomitant]
  5. NYSTATIN [Concomitant]
  6. OXYCODONE HCL [Concomitant]
  7. RANITIDINE HCL [Concomitant]
  8. FUROSEMIDE [Concomitant]
  9. INSULIN ASPART [Concomitant]
  10. METOPROLOL [Concomitant]
  11. MORPHINE [Concomitant]
  12. M.V.I. [Concomitant]
  13. MYCOPHENOLATE MOFETIL [Concomitant]
  14. PRAVASTATIN [Concomitant]
  15. PREDNISONE [Concomitant]
  16. REPAGLINIDE [Concomitant]
  17. TACROLIMUS [Concomitant]
  18. VALGANCICLOVIR HCL [Concomitant]

REACTIONS (3)
  - ACTIVATED PARTIAL THROMBOPLASTIN TIME PROLONGED [None]
  - COMPLICATIONS OF TRANSPLANTED KIDNEY [None]
  - RETROPERITONEAL HAEMORRHAGE [None]
